FAERS Safety Report 5119476-X (Version None)
Quarter: 2006Q3

REPORT INFORMATION
  Report Type: 
  Country: None (occurrence: None)
  Receive Date: 20060928
  Receipt Date: 20060915
  Transmission Date: 20061208
  Serious: Yes (Hospitalization, Disabling, Other)
  Sender: FDA-Public Use
  Company Number: 2006-147643-NL

PATIENT
  Age: 70 Year
  Sex: Male
  Weight: 74.4 kg

DRUGS (3)
  1. REMERON [Suspect]
     Indication: DEPRESSION
     Dosage: 30 MG DAILY ORAL
     Route: 048
     Dates: start: 20010101, end: 20060912
  2. REMERON [Suspect]
     Indication: DEPRESSION
     Dosage: 15 MG DAILY ORAL
     Route: 048
     Dates: start: 20060912
  3. KLONOPIN [Concomitant]

REACTIONS (6)
  - BLOOD POTASSIUM DECREASED [None]
  - FATIGUE [None]
  - PAIN IN EXTREMITY [None]
  - PNEUMONIA [None]
  - PULMONARY EMBOLISM [None]
  - THROMBOSIS [None]
